FAERS Safety Report 24631857 (Version 1)
Quarter: 2024Q4

REPORT INFORMATION
  Report Type: Spontaneous
  Country: CN (occurrence: CN)
  Receive Date: 20241118
  Receipt Date: 20241118
  Transmission Date: 20250114
  Serious: Yes (Life-Threatening, Other)
  Sender: MSN LABORATORIES PRIVATE LIMITED
  Company Number: CN-MLMSERVICE-20241023-PI234350-00117-1

PATIENT

DRUGS (5)
  1. BORTEZOMIB [Suspect]
     Active Substance: BORTEZOMIB
     Indication: Plasmacytoma
     Dosage: 1.3 MG/M2 BORTEZOMIB ON DAYS 1, 4, 8 AND 11 OF A 28-DAY CYCLE, RECEIVED 3 CYCLES
     Route: 065
     Dates: start: 2023, end: 2023
  2. TUCIDINOSTAT [Suspect]
     Active Substance: TUCIDINOSTAT
     Indication: Plasmacytoma
     Dosage: 10 MG CHIDAMIDE THREE TIMES A WEEK ON DAYS 1-21 OF A 28-DAY CYCLE, RECEIVED 3 CYCLES
     Route: 065
     Dates: start: 2023, end: 2023
  3. MITOXANTRONE HYDROCHLORIDE [Suspect]
     Active Substance: MITOXANTRONE HYDROCHLORIDE
     Indication: Plasmacytoma
     Dosage: 12 MG/M2 MITOXANTRONE HYDROCHLORIDE LIPOSOME ON DAY 1 OF A 28-DAY CYCLE, RECEIVED 3 CYCLES
     Route: 065
     Dates: start: 2023, end: 2023
  4. ETOPOSIDE [Suspect]
     Active Substance: ETOPOSIDE
     Indication: Plasmacytoma
     Dosage: 50 MG/M2 ETOPOSIDE ON DAYS 1-3 OF A 28-DAY CYCLE, RECEIVED THREE CYCLES
     Route: 065
     Dates: start: 2023, end: 2023
  5. DEXAMETHASONE [Suspect]
     Active Substance: DEXAMETHASONE
     Indication: Plasmacytoma
     Dosage: 20 MG DEXAMETHASONE ON DAYS 1, 4, 8 AND 11 OF A 28-DAY CYCLE, RECEIVED THREE CYCLES
     Route: 065
     Dates: start: 2023, end: 2023

REACTIONS (2)
  - Myelosuppression [Recovered/Resolved]
  - Febrile neutropenia [Recovered/Resolved]

NARRATIVE: CASE EVENT DATE: 20230101
